FAERS Safety Report 16735163 (Version 2)
Quarter: 2019Q3

REPORT INFORMATION
  Report Type: Report from Study
  Country: None (occurrence: CH)
  Receive Date: 20190823
  Receipt Date: 20190926
  Transmission Date: 20191005
  Serious: Yes (Death)
  Sender: FDA-Public Use
  Company Number: CH-ABBVIE-19K-151-2897834-00

PATIENT
  Sex: Female

DRUGS (3)
  1. DUODOPA [Suspect]
     Active Substance: CARBIDOPA\LEVODOPA
     Dosage: MD: 3 ML, CRD: 3.5 ML/H, CRN: 2.7 ML/H, ED: 1.4 ML?24 H THERAPY
     Route: 050
     Dates: start: 20180817, end: 20190206
  2. DUODOPA [Suspect]
     Active Substance: CARBIDOPA\LEVODOPA
     Dosage: MD: 3 ML, CRD:3.4 ML/H,CRN: 2.7ML/H, ED: 0.4 ML,1CASSETTE/DAY?24 H THERAPY
     Route: 050
     Dates: start: 20190206
  3. DUODOPA [Suspect]
     Active Substance: CARBIDOPA\LEVODOPA
     Indication: PARKINSON^S DISEASE
     Route: 050
     Dates: start: 20131119, end: 20180817

REACTIONS (3)
  - Senile dementia [Fatal]
  - Cardio-respiratory arrest [Fatal]
  - Parkinson^s disease [Fatal]
